FAERS Safety Report 20956002 (Version 2)
Quarter: 2022Q2

REPORT INFORMATION
  Report Type: Spontaneous
  Country: US (occurrence: None)
  Receive Date: 20220614
  Receipt Date: 20220615
  Transmission Date: 20220721
  Serious: Yes (Hospitalization)
  Sender: FDA-Public Use
  Company Number: US-MDD US Operations-MDD202111-002269

PATIENT
  Age: 75 Year
  Sex: Male

DRUGS (12)
  1. APOKYN [Suspect]
     Active Substance: APOMORPHINE HYDROCHLORIDE
     Indication: Parkinson^s disease
     Route: 058
     Dates: start: 202107, end: 2021
  2. DONEPEZIL HYDROCHLORIDE [Concomitant]
     Active Substance: DONEPEZIL HYDROCHLORIDE
     Dosage: 10 MG
  3. MEMANTINE [Concomitant]
     Active Substance: MEMANTINE
     Dosage: 10 MG
  4. NORTHERA [Concomitant]
     Active Substance: DROXIDOPA
     Dosage: 100 MG
  5. Brel-ellipta [Concomitant]
     Dosage: 100-25 MG
  6. FINASTERIDE [Concomitant]
     Active Substance: FINASTERIDE
     Dosage: NOT PROVIDED
  7. Trozan HCL [Concomitant]
     Dosage: NOT PROVIDED
  8. HYDROCHLOROTHIAZIDE [Concomitant]
     Active Substance: HYDROCHLOROTHIAZIDE
     Dosage: NOT PROVIDED
  9. ELIQUIS [Concomitant]
     Active Substance: APIXABAN
     Dosage: NOT PROVIDED
  10. POTASSIUM [Concomitant]
     Active Substance: POTASSIUM
     Dosage: NOT PROVIDED
  11. TRIMETHOBENZAMIDE [Concomitant]
     Active Substance: TRIMETHOBENZAMIDE
     Dosage: NOT PROVIDED
  12. CARBIDOPA\LEVODOPA [Concomitant]
     Active Substance: CARBIDOPA\LEVODOPA
     Dosage: NOT PROVIDED

REACTIONS (2)
  - Hospitalisation [Recovered/Resolved]
  - Therapy interrupted [Unknown]

NARRATIVE: CASE EVENT DATE: 20210101
